FAERS Safety Report 6228957-7 (Version None)
Quarter: 2009Q2

REPORT INFORMATION
  Report Type: 
  Country: None (occurrence: None)
  Receive Date: 20090615
  Receipt Date: 20090602
  Transmission Date: 20091009
  Serious: Yes (Hospitalization)
  Sender: FDA-Public Use
  Company Number: JP-JNJFOC-20081001239

PATIENT
  Sex: Male
  Weight: 43 kg

DRUGS (8)
  1. REMICADE [Suspect]
     Dosage: 16 TOTAL INFUSIONS
     Route: 042
  2. REMICADE [Suspect]
     Dosage: 14 INFUSIONS ON UNSPECIFIED DATES
     Route: 042
  3. REMICADE [Suspect]
     Indication: RHEUMATOID ARTHRITIS
     Dosage: 1ST INFUSION
     Route: 042
  4. BAKTAR [Concomitant]
     Indication: PROPHYLAXIS
     Route: 048
  5. TAKEPRON [Concomitant]
     Indication: PROPHYLAXIS
     Route: 048
  6. RHEUMATREX [Concomitant]
     Indication: RHEUMATOID ARTHRITIS
     Route: 048
  7. FOLIAMIN [Concomitant]
     Indication: PROPHYLAXIS
     Route: 048
  8. VOLTAREN [Concomitant]
     Indication: RHEUMATOID ARTHRITIS
     Route: 048

REACTIONS (6)
  - ASPERGILLOSIS [None]
  - LIVER DISORDER [None]
  - ORGANISING PNEUMONIA [None]
  - PLEURISY [None]
  - PNEUMOTHORAX [None]
  - SUBCUTANEOUS EMPHYSEMA [None]
